FAERS Safety Report 17854938 (Version 5)
Quarter: 2020Q3

REPORT INFORMATION
  Report Type: Spontaneous
  Country: US (occurrence: US)
  Receive Date: 20200603
  Receipt Date: 20200807
  Transmission Date: 20201103
  Serious: Yes (Other)
  Sender: FDA-Public Use
  Company Number: US-PFIZER INC-2019250352

PATIENT
  Age: 84 Year
  Sex: Female

DRUGS (2)
  1. LYRICA [Suspect]
     Active Substance: PREGABALIN
     Indication: OSTEOPOROSIS
     Dosage: 150 MG, ONCE A DAY
     Route: 048
  2. LYRICA [Suspect]
     Active Substance: PREGABALIN
     Indication: CARDIOVASCULAR DISORDER

REACTIONS (9)
  - Arthritis [Unknown]
  - Pain [Unknown]
  - Gait disturbance [Unknown]
  - Back disorder [Unknown]
  - Product use in unapproved indication [Unknown]
  - Off label use [Unknown]
  - Thrombosis [Unknown]
  - Drug effective for unapproved indication [Unknown]
  - Bone disorder [Unknown]
